FAERS Safety Report 7173796-6 (Version None)
Quarter: 2010Q4

REPORT INFORMATION
  Report Type: 
  Country: None (occurrence: None)
  Receive Date: 20101215
  Receipt Date: 20101215
  Transmission Date: 20110411
  Serious: No
  Sender: FDA-Public Use
  Company Number: None

PATIENT
  Age: 60 Year
  Sex: Female
  Weight: 89.8122 kg

DRUGS (1)
  1. TRAMADOL HCL [Suspect]
     Dosage: 50MG 1 PILL IN AM, 1 IN PM PO (SEPT, OCT, NOV, DEC)
     Route: 048

REACTIONS (1)
  - HEADACHE [None]
